FAERS Safety Report 9827210 (Version 1)
Quarter: 2014Q1

REPORT INFORMATION
  Report Type: Spontaneous
  Country: US (occurrence: US)
  Receive Date: 20140117
  Receipt Date: 20140117
  Transmission Date: 20141002
  Serious: No
  Sender: FDA-Public Use
  Company Number: US-BRISTOL-MYERS SQUIBB COMPANY-19468628

PATIENT
  Age: 76 Year
  Sex: Female
  Weight: 64.85 kg

DRUGS (5)
  1. YERVOY [Suspect]
     Indication: MALIGNANT MELANOMA
     Dates: start: 201306
  2. WARFARIN [Concomitant]
  3. BABY ASPIRIN [Concomitant]
  4. DIGOXIN [Concomitant]
  5. OLANZAPINE [Concomitant]

REACTIONS (1)
  - Pruritus [Recovering/Resolving]
